FAERS Safety Report 7070159-9 (Version None)
Quarter: 2010Q4

REPORT INFORMATION
  Report Type: 
  Country: None (occurrence: None)
  Receive Date: 20101028
  Receipt Date: 20101015
  Transmission Date: 20110411
  Serious: No
  Sender: FDA-Public Use
  Company Number: US-WYE-H17450910

PATIENT
  Age: 24 Year
  Sex: Male
  Weight: 81.72 kg

DRUGS (1)
  1. ADVIL [Suspect]
     Dosage: ONCE
     Route: 048
     Dates: start: 20100901, end: 20100901

REACTIONS (3)
  - CAPSULE ISSUE [None]
  - PRODUCT CONTAINER ISSUE [None]
  - VISUAL IMPAIRMENT [None]
